FAERS Safety Report 17191197 (Version 1)
Quarter: 2019Q4

REPORT INFORMATION
  Report Type: Spontaneous
  Country: FR (occurrence: FR)
  Receive Date: 20191223
  Receipt Date: 20191223
  Transmission Date: 20200122
  Serious: Yes (Hospitalization)
  Sender: FDA-Public Use
  Company Number: FR-PFIZER INC-2019549516

PATIENT
  Age: 32 Year
  Sex: Female

DRUGS (3)
  1. ALPRAZOLAM. [Suspect]
     Active Substance: ALPRAZOLAM
     Dosage: 6.25 MG, UNK
     Route: 048
     Dates: start: 20191125, end: 20191125
  2. VOGALENE [Suspect]
     Active Substance: METOPIMAZINE
     Dosage: 2 DF, UNK
     Route: 048
     Dates: start: 20191125, end: 20191125
  3. PARACETAMOL [Suspect]
     Active Substance: ACETAMINOPHEN
     Dosage: 16 G, UNK
     Route: 048
     Dates: start: 20191125, end: 20191125

REACTIONS (2)
  - Somnolence [Recovered/Resolved]
  - Toxicity to various agents [Unknown]

NARRATIVE: CASE EVENT DATE: 20191125
